FAERS Safety Report 6945867-8 (Version None)
Quarter: 2010Q3

REPORT INFORMATION
  Report Type: 
  Country: None (occurrence: None)
  Receive Date: 20100827
  Receipt Date: 20100721
  Transmission Date: 20110219
  Serious: Yes (Other)
  Sender: FDA-Public Use
  Company Number: PHEH2008US01396

PATIENT
  Sex: Male

DRUGS (4)
  1. ELIDEL [Suspect]
     Indication: PSORIASIS
     Route: 061
     Dates: start: 20020101
  2. BLOOD CELLS, PACKED HUMAN [Concomitant]
     Dosage: 2 UNITS DURING SURGERY
     Dates: start: 20060331, end: 20060331
  3. PERCOCET [Concomitant]
     Dosage: UNK
     Dates: start: 20060101
  4. PRILOSEC [Concomitant]

REACTIONS (15)
  - ALANINE AMINOTRANSFERASE INCREASED [None]
  - ANXIETY [None]
  - ATELECTASIS [None]
  - BLOOD GLUCOSE INCREASED [None]
  - BLOOD UREA NITROGEN/CREATININE RATIO DECREASED [None]
  - CHOLELITHIASIS [None]
  - GASTROOESOPHAGEAL REFLUX DISEASE [None]
  - HYPOAESTHESIA [None]
  - INJURY [None]
  - MORTON'S NEUROMA [None]
  - NEPHRECTOMY [None]
  - PAIN IN EXTREMITY [None]
  - POLYCYTHAEMIA VERA [None]
  - RENAL CELL CARCINOMA [None]
  - RENAL MASS [None]
